FAERS Safety Report 9803821 (Version 2)
Quarter: 2014Q3

REPORT INFORMATION
  Report Type: Spontaneous
  Country: US (occurrence: US)
  Receive Date: 20140108
  Receipt Date: 20140807
  Transmission Date: 20150326
  Serious: Yes (Hospitalization, Other)
  Sender: FDA-Public Use
  Company Number: US-009507513-1401USA001407

PATIENT
  Sex: Female

DRUGS (1)
  1. NUVARING [Suspect]
     Active Substance: ETHINYL ESTRADIOL\ETONOGESTREL
     Dosage: IN X 3WKS, OUT X 1WK
     Route: 067
     Dates: start: 20130104

REACTIONS (16)
  - Convulsion [Unknown]
  - Humerus fracture [Unknown]
  - Intracranial venous sinus thrombosis [Unknown]
  - Joint dislocation [Unknown]
  - Muscle spasms [Unknown]
  - Onychomycosis [Unknown]
  - Constipation [Unknown]
  - Coagulation factor VIII level increased [Unknown]
  - Memory impairment [Unknown]
  - Gastric banding [Unknown]
  - Tinea pedis [Unknown]
  - Ovarian cystectomy [Unknown]
  - Headache [Unknown]
  - Depression [Unknown]
  - Hypertension [Unknown]
  - Factor V deficiency [Unknown]

NARRATIVE: CASE EVENT DATE: 201304
